FAERS Safety Report 15823580 (Version 2)
Quarter: 2019Q1

REPORT INFORMATION
  Report Type: Spontaneous
  Country: JP (occurrence: JP)
  Receive Date: 20190114
  Receipt Date: 20190212
  Transmission Date: 20190417
  Serious: Yes (Other)
  Sender: FDA-Public Use
  Company Number: JP-GUERBET-JP-20190002

PATIENT
  Age: 8 Decade
  Sex: Male

DRUGS (4)
  1. LIPIODOL [Suspect]
     Active Substance: ETHIODIZED OIL
     Route: 013
  2. HISTOACRYL [Concomitant]
     Active Substance: ENBUCRILATE
     Route: 013
  3. LIPIODOL [Suspect]
     Active Substance: ETHIODIZED OIL
     Indication: THERAPEUTIC EMBOLISATION
     Route: 013
  4. HISTOACRYL [Concomitant]
     Active Substance: ENBUCRILATE
     Indication: THERAPEUTIC EMBOLISATION
     Route: 013

REACTIONS (4)
  - Product use in unapproved indication [Recovering/Resolving]
  - Medical device site infection [Recovered/Resolved]
  - Abscess [Recovering/Resolving]
  - Staphylococcal infection [Recovered/Resolved]
